FAERS Safety Report 6985941-3 (Version None)
Quarter: 2010Q3

REPORT INFORMATION
  Report Type: 
  Country: None (occurrence: None)
  Receive Date: 20100915
  Receipt Date: 20100903
  Transmission Date: 20110219
  Serious: Yes (Hospitalization, Other)
  Sender: FDA-Public Use
  Company Number: US-ELI_LILLY_AND_COMPANY-US201009001463

PATIENT
  Sex: Female

DRUGS (8)
  1. HUMALOG MIX 75/25 [Suspect]
     Indication: TYPE 2 DIABETES MELLITUS
     Dosage: 220 U, EACH MORNING
  2. HUMALOG MIX 75/25 [Suspect]
     Dosage: 85 U, OTHER
  3. HUMALOG MIX 75/25 [Suspect]
     Dosage: 225 U, EACH EVENING
  4. HUMALOG [Suspect]
     Indication: TYPE 2 DIABETES MELLITUS
  5. HUMALOG [Suspect]
  6. HUMALOG [Suspect]
  7. LANTUS [Concomitant]
  8. METFORMIN [Concomitant]

REACTIONS (5)
  - DRUG DISPENSING ERROR [None]
  - FOOT OPERATION [None]
  - LEG AMPUTATION [None]
  - POST PROCEDURAL INFECTION [None]
  - TOE AMPUTATION [None]
